FAERS Safety Report 9504483 (Version 1)
Quarter: 2013Q1

REPORT INFORMATION
  Report Type: Spontaneous
  Country: US (occurrence: None)
  Receive Date: 20130225
  Receipt Date: 20130225
  Transmission Date: 20140127
  Serious: Yes (Other)
  Sender: FDA-Public Use
  Company Number: 363465

PATIENT
  Age: 43 Year
  Sex: Female
  Weight: 93.9 kg

DRUGS (7)
  1. VICTOZA [Suspect]
     Indication: TYPE 2 DIABETES MELLITUS
     Route: 058
     Dates: start: 20120516
  2. DETROL LA (TOLTERODINE L-TARTRATE) [Concomitant]
  3. LIPITOR (ATORVASTATIN CALCIUM) [Concomitant]
  4. TRILIPIX (CHOLINE FENOFIBRATE) [Concomitant]
  5. LISINOPRIL HCT (HYDROCHLOROTHIAZIDE, LISINOPRIL DIHYDRATE) [Concomitant]
     Route: 058
     Dates: start: 20120516
  6. METFORMIN (METFORMIN) [Concomitant]
  7. GLIPIZIDE (GLIPIZIDE) [Concomitant]

REACTIONS (1)
  - Pancreatitis [None]
